FAERS Safety Report 7264127-1 (Version None)
Quarter: 2011Q1

REPORT INFORMATION
  Report Type: 
  Country: None (occurrence: None)
  Receive Date: 20110131
  Receipt Date: 20110124
  Transmission Date: 20110831
  Serious: Yes (Other)
  Sender: FDA-Public Use
  Company Number: SE-AMGEN-SWESP2010007643

PATIENT
  Age: 55 Year
  Sex: Male

DRUGS (9)
  1. PRONAXEN [Concomitant]
     Indication: PSORIATIC ARTHROPATHY
     Dosage: 250 MG, 2X/DAY
     Route: 048
     Dates: start: 19940101
  2. ENBREL [Suspect]
     Indication: PSORIATIC ARTHROPATHY
     Dosage: 50 MG, WEEKLY
     Route: 058
     Dates: start: 19990906, end: 20101001
  3. METHOTREXATE [Concomitant]
     Indication: PSORIATIC ARTHROPATHY
     Dosage: 15 MG, QWK
     Route: 048
     Dates: start: 19800101, end: 20101001
  4. PREDNISOLONE [Concomitant]
     Indication: ANKYLOSING SPONDYLITIS
  5. PREDNISOLONE [Concomitant]
     Indication: PSORIATIC ARTHROPATHY
     Dosage: 5 MG, 1X/DAY
  6. PRONAXEN [Concomitant]
     Indication: ANKYLOSING SPONDYLITIS
  7. METHOTREXATE [Concomitant]
     Indication: ANKYLOSING SPONDYLITIS
  8. ENBREL [Suspect]
     Indication: SPONDYLITIS
     Dosage: 50 MG, QWK
     Route: 058
     Dates: start: 20101226
  9. ATACAND [Concomitant]
     Indication: HYPERTENSION
     Dosage: 4 MG, 1X/DAY
     Dates: start: 20070101

REACTIONS (3)
  - LIBIDO DECREASED [None]
  - TOOTH INFECTION [None]
  - ERECTILE DYSFUNCTION [None]
